FAERS Safety Report 5845183-1 (Version None)
Quarter: 2008Q3

REPORT INFORMATION
  Report Type: 
  Country: None (occurrence: None)
  Receive Date: 20080814
  Receipt Date: 20080812
  Transmission Date: 20090109
  Serious: Yes (Other)
  Sender: FDA-Public Use
  Company Number: PHHY2008TR17820

PATIENT

DRUGS (1)
  1. DIOVAN HCT [Suspect]
     Indication: HYPERTENSION
     Dosage: 1 DF, BID

REACTIONS (6)
  - DIZZINESS [None]
  - DYSSTASIA [None]
  - EYELID DISORDER [None]
  - MENTAL DISORDER [None]
  - NAUSEA [None]
  - VOMITING [None]
